FAERS Safety Report 9633615 (Version 1)
Quarter: 2013Q4

REPORT INFORMATION
  Report Type: Spontaneous
  Country: RU (occurrence: RU)
  Receive Date: 20131021
  Receipt Date: 20131021
  Transmission Date: 20140711
  Serious: Yes (Other)
  Sender: FDA-Public Use
  Company Number: RU-ELI_LILLY_AND_COMPANY-RU201310003239

PATIENT
  Age: 51 Year
  Sex: Female

DRUGS (2)
  1. GEMZAR [Suspect]
  2. TARCEVA [Suspect]

REACTIONS (4)
  - Jaundice [Unknown]
  - Disease progression [Unknown]
  - Cough [Unknown]
  - Drug ineffective [Unknown]
